FAERS Safety Report 5243271-4 (Version None)
Quarter: 2007Q1

REPORT INFORMATION
  Report Type: 
  Country: None (occurrence: None)
  Receive Date: 20070221
  Receipt Date: 20070213
  Transmission Date: 20070707
  Serious: Yes (Death, Hospitalization, Other)
  Sender: FDA-Public Use
  Company Number: US-PFIZER INC-2007011922

PATIENT
  Sex: Female
  Weight: 71.2 kg

DRUGS (1)
  1. CELEBREX [Suspect]
     Indication: ARTHRITIS
     Dates: start: 19990917, end: 20041101

REACTIONS (3)
  - ANXIETY [None]
  - DEATH [None]
  - MYOCARDIAL INFARCTION [None]
